FAERS Safety Report 8030184-8 (Version None)
Quarter: 2012Q1

REPORT INFORMATION
  Report Type: 
  Country: None (occurrence: None)
  Receive Date: 20120109
  Receipt Date: 20120104
  Transmission Date: 20120608
  Serious: Yes (Death, Hospitalization, Other)
  Sender: FDA-Public Use
  Company Number: US-BAYER-200940330NA

PATIENT
  Age: 78 Year
  Sex: Male
  Weight: 86.168 kg

DRUGS (20)
  1. RED BLOOD CELLS [Concomitant]
     Dosage: 2 U, ONCE
     Route: 042
     Dates: start: 20060216
  2. PLATELETS [Concomitant]
     Dosage: UNK
     Route: 042
     Dates: start: 20060216
  3. FRESH FROZEN PLASMA [Concomitant]
     Dosage: UNK
     Route: 042
     Dates: start: 20060216
  4. PLAVIX [Concomitant]
     Dosage: 75 MG, QD
     Route: 048
  5. VANCOMYCIN [Concomitant]
     Route: 042
  6. TRASYLOL [Suspect]
     Indication: AORTIC VALVE REPLACEMENT
     Dosage: 50 CC / HR INFUSION
     Route: 042
     Dates: start: 20060216, end: 20060216
  7. METOPROLOL SUCCINATE [Concomitant]
     Dosage: 50 MG, BID
     Route: 048
     Dates: start: 19940101, end: 20060216
  8. LOTREL [Concomitant]
     Dosage: 10 / 20 MG DAILY
     Route: 048
  9. BUMEX [Concomitant]
     Dosage: UNK
     Route: 042
     Dates: start: 20060218
  10. LASIX [Concomitant]
     Dosage: 40 MG, QD
     Route: 048
  11. LEVOPHED [Concomitant]
     Dosage: 5 MCG / MIN
     Route: 042
  12. INSULIN [Concomitant]
     Dosage: 2 UNITS / HR
     Route: 042
  13. ALBUMIN (HUMAN) [Concomitant]
     Dosage: 200 CC
     Route: 042
  14. TRASYLOL [Suspect]
     Indication: CORONARY ARTERY BYPASS
     Dosage: 200 PUMP PRIME DOSE
     Route: 042
     Dates: start: 20060216, end: 20060216
  15. CEFAZOLIN [Concomitant]
     Dosage: 4 GRAMS TOTAL
     Route: 042
  16. HEPARIN [Concomitant]
     Dosage: 42 CC / HR
     Route: 042
  17. ACETYLSALICYLIC ACID SRT [Concomitant]
     Dosage: 81 MG, QD
     Route: 048
     Dates: start: 19940101, end: 20060216
  18. DIOVAN [Concomitant]
     Dosage: 160 / 25 MG DAILY
     Route: 048
     Dates: start: 20051001
  19. LIPITOR [Concomitant]
     Dosage: 20 MG, QD
     Route: 048
  20. FENTANYL [Concomitant]
     Dosage: 20 ML
     Route: 042

REACTIONS (13)
  - EMOTIONAL DISTRESS [None]
  - UNEVALUABLE EVENT [None]
  - RENAL INJURY [None]
  - STRESS [None]
  - PAIN [None]
  - RENAL IMPAIRMENT [None]
  - FEAR [None]
  - ANHEDONIA [None]
  - DEATH [None]
  - MULTI-ORGAN FAILURE [None]
  - ANXIETY [None]
  - RENAL FAILURE [None]
  - INJURY [None]
